FAERS Safety Report 11384041 (Version 1)
Quarter: 2015Q3

REPORT INFORMATION
  Report Type: Spontaneous
  Country: US (occurrence: US)
  Receive Date: 20150815
  Receipt Date: 20150815
  Transmission Date: 20151125
  Serious: Yes (Hospitalization, Other)
  Sender: FDA-Public Use
  Company Number: US-CIPLA LTD.-2015US06471

PATIENT

DRUGS (6)
  1. CARBOPLATIN. [Suspect]
     Active Substance: CARBOPLATIN
     Indication: HER-2 POSITIVE BREAST CANCER
     Dosage: AUC 6.0 ON DAY 1 OF EACH 21-DAY TREATMENT CYCLE
     Route: 042
  2. IXABEPILONE [Suspect]
     Active Substance: IXABEPILONE
     Indication: HER-2 POSITIVE BREAST CANCER
     Dosage: 40 MG/M2 OVER 3 HOURS ON DAY 1 OF EACH 21-DAY TREATMENT CYCLE
     Route: 042
  3. RANITIDINE [Concomitant]
     Active Substance: RANITIDINE\RANITIDINE HYDROCHLORIDE
     Indication: PREMEDICATION
     Dosage: 50 MG, UNK
     Route: 042
  4. DIPHENHYDRAMINE. [Concomitant]
     Active Substance: DIPHENHYDRAMINE
     Indication: PREMEDICATION
     Dosage: 50 MG, UNK
     Route: 042
  5. DEXAMETHASONE. [Concomitant]
     Active Substance: DEXAMETHASONE
     Indication: PREMEDICATION
     Dosage: 20 MG, UNK
     Route: 042
  6. TRASTUZUMAB [Suspect]
     Active Substance: TRASTUZUMAB
     Indication: HER-2 POSITIVE BREAST CANCER
     Dosage: 6 MG/KG (WITH 8 MG/KG LOADING DOSE CYCLE 1) ON DAY 1 OF EACH 21-DAY TREATMENT CYCLE
     Route: 042

REACTIONS (2)
  - Exposure during pregnancy [Unknown]
  - Foetal death [Unknown]
